FAERS Safety Report 19574658 (Version 2)
Quarter: 2021Q3

REPORT INFORMATION
  Report Type: Spontaneous
  Country: US (occurrence: US)
  Receive Date: 20210719
  Receipt Date: 20210923
  Transmission Date: 20211014
  Serious: No
  Sender: FDA-Public Use
  Company Number: US-AJANTA PHARMA USA INC.-2113960

PATIENT
  Age: 67 Year
  Sex: Female

DRUGS (1)
  1. CHOLESTYRAMINE (ANDA 211119) [Suspect]
     Active Substance: CHOLESTYRAMINE
     Indication: DIARRHOEA
     Route: 048
     Dates: start: 202106

REACTIONS (6)
  - Foreign body in throat [Unknown]
  - Vomiting [Unknown]
  - Product substitution issue [Unknown]
  - Underdose [Unknown]
  - Product solubility abnormal [Unknown]
  - Retching [Unknown]
